FAERS Safety Report 16207442 (Version 1)
Quarter: 2019Q2

REPORT INFORMATION
  Report Type: Spontaneous
  Country: US (occurrence: US)
  Receive Date: 20190417
  Receipt Date: 20190417
  Transmission Date: 20190711
  Serious: Yes (Other)
  Sender: FDA-Public Use
  Company Number: US-PFIZER INC-2019159489

PATIENT
  Sex: Female

DRUGS (3)
  1. PROZAC [Suspect]
     Active Substance: FLUOXETINE HYDROCHLORIDE
     Dosage: 60 MG, UNK
  2. DEPO-PROVERA [Suspect]
     Active Substance: MEDROXYPROGESTERONE ACETATE
     Indication: PREGNANCY
     Dosage: UNK
     Dates: start: 2015
  3. PROZAC [Suspect]
     Active Substance: FLUOXETINE HYDROCHLORIDE
     Dosage: 40 MG, UNK

REACTIONS (5)
  - Drug ineffective [Unknown]
  - Injury [Unknown]
  - Weight increased [Unknown]
  - Unintended pregnancy [Unknown]
  - Menstruation irregular [Unknown]
